FAERS Safety Report 18458044 (Version 2)
Quarter: 2020Q4

REPORT INFORMATION
  Report Type: Spontaneous
  Country: FR (occurrence: FR)
  Receive Date: 20201103
  Receipt Date: 20201117
  Transmission Date: 20210114
  Serious: Yes (Other)
  Sender: FDA-Public Use
  Company Number: FR-MYLANLABS-2020M1091081

PATIENT
  Age: 79 Year
  Sex: Female

DRUGS (9)
  1. IOMERON [Suspect]
     Active Substance: IOMEPROL
     Indication: ANGIOCARDIOGRAM
  2. ATROPINE. [Suspect]
     Active Substance: ATROPINE
     Indication: ANAESTHETIC PREMEDICATION
     Dosage: UNK
     Route: 042
     Dates: start: 20200909, end: 20200909
  3. BRILIQUE [Concomitant]
     Active Substance: TICAGRELOR
     Indication: CARDIOVASCULAR EVENT PROPHYLAXIS
     Dosage: 180 MILLIGRAM, QD
     Route: 048
     Dates: start: 20200909
  4. ATORVASTATINE                      /01326101/ [Concomitant]
     Active Substance: ATORVASTATIN
     Indication: CARDIOVASCULAR EVENT PROPHYLAXIS
     Dosage: 80 MILLIGRAM, QD
     Route: 048
     Dates: start: 20200909
  5. IOMERON [Suspect]
     Active Substance: IOMEPROL
     Indication: ANAESTHETIC PREMEDICATION
     Dosage: UNK
     Route: 042
     Dates: start: 20200909, end: 20200909
  6. BISOPROLOL FUMARATE. [Concomitant]
     Active Substance: BISOPROLOL FUMARATE
     Indication: CARDIOVASCULAR EVENT PROPHYLAXIS
     Dosage: 10 MILLIGRAM, QD
     Route: 048
     Dates: start: 20200909
  7. ISOPTINE [Suspect]
     Active Substance: VERAPAMIL HYDROCHLORIDE
     Indication: TACHYCARDIA
     Dosage: UNK
     Route: 042
     Dates: start: 20200909, end: 20200909
  8. RISORDAN                           /07346501/ [Suspect]
     Active Substance: ISOSORBIDE DINITRATE
     Indication: LEFT VENTRICULAR FAILURE
     Dosage: UNK
     Route: 042
     Dates: start: 20200909, end: 20200909
  9. PERINDOPRIL [Concomitant]
     Active Substance: PERINDOPRIL
     Indication: CARDIOVASCULAR EVENT PROPHYLAXIS
     Dosage: 6 MILLIGRAM, QD
     Route: 048
     Dates: start: 20200909

REACTIONS (2)
  - Rash maculo-papular [Recovering/Resolving]
  - Eosinophilia [Not Recovered/Not Resolved]

NARRATIVE: CASE EVENT DATE: 20200914
